FAERS Safety Report 21941148 (Version 1)
Quarter: 2023Q1

REPORT INFORMATION
  Report Type: Report from Study
  Country: US (occurrence: US)
  Receive Date: 20230202
  Receipt Date: 20230202
  Transmission Date: 20230417
  Serious: No
  Sender: FDA-Public Use
  Company Number: US-EXELIXIS-CABO-22053662

PATIENT
  Age: 82 Year
  Sex: Male
  Weight: 93.878 kg

DRUGS (3)
  1. CABOMETYX [Suspect]
     Active Substance: CABOZANTINIB S-MALATE
     Indication: Renal cancer
     Dosage: 40 MG, QD
     Route: 048
     Dates: start: 20220218
  2. FOTIVDA [Suspect]
     Active Substance: TIVOZANIB HYDROCHLORIDE
     Indication: Renal cancer
     Dosage: 1.34 MG DAILY FOR 21 DAYS ON, 7DAYS OFF
     Dates: start: 20220816
  3. ZOMETA [Concomitant]
     Active Substance: ZOLEDRONIC ACID

REACTIONS (15)
  - Erythema [Unknown]
  - Ocular hyperaemia [Unknown]
  - Eye pain [Unknown]
  - Peripheral swelling [Unknown]
  - Pedal pulse abnormal [Unknown]
  - Oedema [Unknown]
  - Skin exfoliation [Unknown]
  - Pruritus [Unknown]
  - Rash macular [Unknown]
  - Thrombosis [Unknown]
  - Pain in extremity [Unknown]
  - Haemorrhage subcutaneous [Unknown]
  - Weight decreased [Recovering/Resolving]
  - Decreased appetite [Recovered/Resolved]
  - Blood potassium decreased [Unknown]

NARRATIVE: CASE EVENT DATE: 20220801
